FAERS Safety Report 8690862 (Version 9)
Quarter: 2014Q1

REPORT INFORMATION
  Report Type: Report from Study
  Country: DE (occurrence: DE)
  Receive Date: 20120730
  Receipt Date: 20140312
  Transmission Date: 20141002
  Serious: Yes (Hospitalization)
  Sender: FDA-Public Use
  Company Number: DE-ROCHE-1092261

PATIENT
  Age: 59 Year
  Sex: Male
  Weight: 61.7 kg

DRUGS (10)
  1. VISMODEGIB [Suspect]
     Indication: BASAL CELL CARCINOMA
     Dosage: LAST DOSE PRIOR TO SAE ON 22/JUL/2012.?DRUG INTERRUPTED FROM 24/JUL/2012 TO 29/JUL/2012.
     Route: 048
     Dates: start: 20120507
  2. VISMODEGIB [Suspect]
     Route: 048
     Dates: start: 20120730
  3. SPIRIVA [Concomitant]
     Indication: CHRONIC OBSTRUCTIVE PULMONARY DISEASE
     Route: 065
     Dates: start: 20121128
  4. SPIRIVA [Concomitant]
     Route: 065
     Dates: start: 201112
  5. TORADOL [Concomitant]
     Indication: PNEUMONIA
     Route: 065
     Dates: start: 20121128
  6. SULTANOL [Concomitant]
     Indication: CHRONIC OBSTRUCTIVE PULMONARY DISEASE
     Dosage: 2 PUFFS
     Route: 065
     Dates: start: 20121128
  7. SULTANOL [Concomitant]
     Dosage: 2 PUFFS
     Route: 065
     Dates: start: 201111
  8. ROXITHROMYCIN [Concomitant]
     Indication: PNEUMONIA
     Route: 065
     Dates: start: 20121115, end: 20121122
  9. OXYGEN THERAPY [Concomitant]
     Indication: PNEUMONIA
     Route: 065
     Dates: start: 20121115, end: 20121120
  10. FORADIL [Concomitant]
     Indication: CHRONIC OBSTRUCTIVE PULMONARY DISEASE
     Route: 065
     Dates: start: 201112

REACTIONS (1)
  - Embolic stroke [Recovered/Resolved]
